FAERS Safety Report 7723824-1 (Version None)
Quarter: 2011Q3

REPORT INFORMATION
  Report Type: 
  Country: None (occurrence: None)
  Receive Date: 20110901
  Receipt Date: 20110822
  Transmission Date: 20111222
  Serious: Yes (Hospitalization)
  Sender: FDA-Public Use
  Company Number: US-JNJFOC-20110604168

PATIENT
  Sex: Female

DRUGS (4)
  1. SIMPONI [Suspect]
     Indication: RHEUMATOID ARTHRITIS
     Route: 058
     Dates: start: 20110328
  2. SIMPONI [Suspect]
     Route: 058
     Dates: start: 20110426
  3. SIMPONI [Suspect]
     Route: 058
     Dates: start: 20110426
  4. SIMPONI [Suspect]
     Indication: ANKYLOSING SPONDYLITIS
     Route: 058
     Dates: start: 20110328

REACTIONS (3)
  - CEREBRAL HAEMORRHAGE [None]
  - VASCULAR RUPTURE [None]
  - VOMITING [None]
